FAERS Safety Report 5310435-0 (Version None)
Quarter: 2007Q2

REPORT INFORMATION
  Report Type: 
  Country: None (occurrence: None)
  Receive Date: 20070427
  Receipt Date: 20070412
  Transmission Date: 20071010
  Serious: Yes (Other)
  Sender: FDA-Public Use
  Company Number: GB-BOEHRINGER INGELHEIM PHARMACEUTICALS, INC.-2007-DE-02450GD

PATIENT
  Sex: Female

DRUGS (6)
  1. NEVIRAPINE [Suspect]
     Indication: PROPHYLAXIS
  2. NEVIRAPINE [Suspect]
     Indication: HUMAN IMMUNODEFICIENCY VIRUS TRANSMISSION
  3. ZIDOVUDINE [Suspect]
     Indication: PROPHYLAXIS
  4. ZIDOVUDINE [Suspect]
     Indication: HUMAN IMMUNODEFICIENCY VIRUS TRANSMISSION
  5. LAMIVUDINE [Suspect]
     Indication: PROPHYLAXIS
  6. LAMIVUDINE [Suspect]
     Indication: HUMAN IMMUNODEFICIENCY VIRUS TRANSMISSION

REACTIONS (5)
  - HAEMOGLOBIN DECREASED [None]
  - PLASMODIUM FALCIPARUM INFECTION [None]
  - PULMONARY TUBERCULOSIS [None]
  - PYREXIA [None]
  - UTERINE CONTRACTIONS DURING PREGNANCY [None]
